FAERS Safety Report 5344543-5 (Version None)
Quarter: 2007Q2

REPORT INFORMATION
  Report Type: 
  Country: None (occurrence: None)
  Receive Date: 20070604
  Receipt Date: 20070521
  Transmission Date: 20071010
  Serious: Yes (Other)
  Sender: FDA-Public Use
  Company Number: CN-MERCK-0705CHN00013

PATIENT
  Age: 11 Year
  Sex: Male

DRUGS (4)
  1. PRIMAXIN [Suspect]
     Indication: PYREXIA
     Route: 042
  2. CEFTAZIDIME [Concomitant]
     Indication: PYREXIA
     Route: 041
  3. AZITHROMYCIN [Concomitant]
     Indication: PYREXIA
     Route: 042
  4. AMIKACIN [Concomitant]
     Indication: PYREXIA
     Route: 042

REACTIONS (4)
  - ATRIAL SEPTAL DEFECT [None]
  - BLOOD CULTURE POSITIVE [None]
  - DRUG INEFFECTIVE [None]
  - ENDOCARDITIS [None]
